FAERS Safety Report 9981307 (Version 1)
Quarter: 2014Q1

REPORT INFORMATION
  Report Type: Spontaneous
  Country: US (occurrence: None)
  Receive Date: 20140306
  Receipt Date: 20140306
  Transmission Date: 20141002
  Serious: Yes (Disabling)
  Sender: FDA-Public Use
  Company Number: None

PATIENT
  Age: 68 Year
  Sex: Male
  Weight: 65.77 kg

DRUGS (1)
  1. DOXAZOSIN MESYLATE [Suspect]
     Indication: PROSTATOMEGALY
     Dosage: 1 PILL ONCE DAILY TAKEN BY MOUTH
     Route: 048

REACTIONS (7)
  - Prostatomegaly [None]
  - Condition aggravated [None]
  - Product quality issue [None]
  - Enuresis [None]
  - Urinary incontinence [None]
  - Drug effect decreased [None]
  - Wrong technique in drug usage process [None]
